FAERS Safety Report 23202955 (Version 1)
Quarter: 2023Q4

REPORT INFORMATION
  Report Type: Report from Study
  Country: US (occurrence: US)
  Receive Date: 20231120
  Receipt Date: 20231120
  Transmission Date: 20240110
  Serious: Yes (Other)
  Sender: FDA-Public Use
  Company Number: US-VERTEX PHARMACEUTICALS-2023-010660

PATIENT
  Sex: Male

DRUGS (4)
  1. TRIKAFTA [Suspect]
     Active Substance: ELEXACAFTOR\IVACAFTOR\TEZACAFTOR
     Indication: Cystic fibrosis
     Dosage: GRANULES, 2 PACK (AM) AND 1 PACK (PM)
     Route: 048
     Dates: start: 20230616, end: 20230725
  2. BETHKIS [Concomitant]
     Active Substance: TOBRAMYCIN
  3. PANCREASE MT [Concomitant]
     Active Substance: PANCRELIPASE
     Dosage: 10500 UNIT
  4. ZENPEP [Concomitant]
     Active Substance: PANCRELIPASE AMYLASE\PANCRELIPASE LIPASE\PANCRELIPASE PROTEASE
     Dosage: 10,000 U CAP

REACTIONS (4)
  - Anger [Recovered/Resolved]
  - Insomnia [Recovered/Resolved]
  - Rash [Unknown]
  - Behaviour disorder [Recovered/Resolved]

NARRATIVE: CASE EVENT DATE: 20230101
